FAERS Safety Report 12057630 (Version 9)
Quarter: 2016Q4

REPORT INFORMATION
  Report Type: Report from Study
  Country: JP (occurrence: JP)
  Receive Date: 20160209
  Receipt Date: 20161215
  Transmission Date: 20170206
  Serious: Yes (Death, Other)
  Sender: FDA-Public Use
  Company Number: JP-BRISTOL-MYERS SQUIBB COMPANY-BMS-2016-004288

PATIENT
  Age: 68 Year
  Sex: Female

DRUGS (8)
  1. EQUA [Concomitant]
     Active Substance: VILDAGLIPTIN
     Indication: PRODUCT USED FOR UNKNOWN INDICATION
     Route: 065
  2. NIVOLUMAB [Suspect]
     Active Substance: NIVOLUMAB
     Indication: PRODUCT USED FOR UNKNOWN INDICATION
     Dosage: 3 MG/KG, Q2WK
     Route: 041
     Dates: start: 20160121, end: 20160121
  3. METGLUCO [Concomitant]
     Active Substance: METFORMIN HYDROCHLORIDE
     Indication: PRODUCT USED FOR UNKNOWN INDICATION
     Route: 065
  4. NIVOLUMAB [Suspect]
     Active Substance: NIVOLUMAB
     Indication: PRODUCT USED FOR UNKNOWN INDICATION
     Dosage: 3 MG/KG, Q2WK
     Route: 041
  5. LASIX [Concomitant]
     Active Substance: FUROSEMIDE
     Indication: PRODUCT USED FOR UNKNOWN INDICATION
     Route: 065
  6. NIVOLUMAB [Suspect]
     Active Substance: NIVOLUMAB
     Indication: NON-SMALL CELL LUNG CANCER RECURRENT
     Dosage: 3 MG/KG, Q2WK
     Route: 041
     Dates: start: 20151224, end: 20151224
  7. NEXIUM [Concomitant]
     Active Substance: ESOMEPRAZOLE MAGNESIUM
     Indication: PRODUCT USED FOR UNKNOWN INDICATION
     Route: 065
  8. BIOFERMIN                          /01617201/ [Concomitant]
     Active Substance: BACILLUS SUBTILIS\LACTOBACILLUS ACIDOPHILUS\STREPTOCOCCUS FAECAIS
     Indication: PRODUCT USED FOR UNKNOWN INDICATION
     Route: 065

REACTIONS (11)
  - Disseminated intravascular coagulation [Fatal]
  - Malignant neoplasm progression [Fatal]
  - Tachycardia [Unknown]
  - Melaena [Recovered/Resolved]
  - Cystitis [Recovered/Resolved]
  - Diarrhoea [Not Recovered/Not Resolved]
  - Extrasystoles [Unknown]
  - Liver disorder [Unknown]
  - Colitis ulcerative [Recovered/Resolved]
  - Pyrexia [Not Recovered/Not Resolved]
  - Pneumocystis jirovecii pneumonia [Fatal]

NARRATIVE: CASE EVENT DATE: 20151231
